FAERS Safety Report 5037133-5 (Version None)
Quarter: 2006Q2

REPORT INFORMATION
  Report Type: 
  Country: None (occurrence: None)
  Receive Date: 20060628
  Receipt Date: 20060619
  Transmission Date: 20061013
  Serious: Yes (Other)
  Sender: FDA-Public Use
  Company Number: BR-JNJFOC-20060604061

PATIENT
  Age: 7 Year
  Sex: Female
  Weight: 34 kg

DRUGS (4)
  1. REMICADE [Suspect]
     Route: 042
  2. REMICADE [Suspect]
     Indication: ARTHRITIS
     Route: 042
  3. METHOTREXATE [Concomitant]
  4. CYCLOSPORINE [Concomitant]

REACTIONS (6)
  - DYSPNOEA [None]
  - HYPERAEMIA [None]
  - INFUSION RELATED REACTION [None]
  - PRURITUS [None]
  - SOMNOLENCE [None]
  - TACHYCARDIA [None]
